FAERS Safety Report 9023711 (Version 1)
Quarter: 2013Q1

REPORT INFORMATION
  Report Type: Spontaneous
  Country: US (occurrence: US)
  Receive Date: 20130121
  Receipt Date: 20130121
  Transmission Date: 20140127
  Serious: Yes (Other)
  Sender: FDA-Public Use
  Company Number: US-ELI_LILLY_AND_COMPANY-US201301003611

PATIENT
  Sex: Male

DRUGS (2)
  1. CYMBALTA [Suspect]
     Indication: NEUROPATHY PERIPHERAL
     Dosage: 60 MG, QD
     Route: 065
  2. CYMBALTA [Suspect]
     Dosage: UNK, UNKNOWN
     Route: 065

REACTIONS (6)
  - Suicidal ideation [Recovered/Resolved]
  - Pain [Recovered/Resolved]
  - Crying [Recovered/Resolved]
  - Chills [Recovered/Resolved]
  - Drooling [Recovered/Resolved]
  - Drug withdrawal syndrome [Recovered/Resolved]
